FAERS Safety Report 5573810-5 (Version None)
Quarter: 2007Q4

REPORT INFORMATION
  Report Type: 
  Country: None (occurrence: None)
  Receive Date: 20071226
  Receipt Date: 20071214
  Transmission Date: 20080405
  Serious: Yes (Other)
  Sender: FDA-Public Use
  Company Number: US-PFIZER INC-2007083531

PATIENT
  Sex: Male
  Weight: 96.6 kg

DRUGS (1)
  1. SUTENT [Suspect]
     Indication: RENAL CELL CARCINOMA STAGE UNSPECIFIED
     Route: 048
     Dates: start: 20070824, end: 20070914

REACTIONS (7)
  - ASTHENIA [None]
  - FATIGUE [None]
  - HAEMATOCHEZIA [None]
  - JAUNDICE [None]
  - SKIN DISCOLOURATION [None]
  - THROMBOCYTOPENIA [None]
  - UNRESPONSIVE TO STIMULI [None]
